FAERS Safety Report 9932528 (Version 1)
Quarter: 2014Q1

REPORT INFORMATION
  Report Type: Spontaneous
  Country: US (occurrence: US)
  Receive Date: 20140228
  Receipt Date: 20140228
  Transmission Date: 20141002
  Serious: No
  Sender: FDA-Public Use
  Company Number: US-GLAXOSMITHKLINE-A1019453A

PATIENT
  Age: 18 Year
  Sex: Female

DRUGS (3)
  1. LAMOTRIGINE [Suspect]
     Indication: ANXIETY
     Dosage: 25MG TWICE PER DAY
     Route: 048
     Dates: start: 20130329, end: 20130408
  2. BUPROPION HCL [Concomitant]
  3. BIRTH CONTROL PILLS [Concomitant]

REACTIONS (2)
  - Rash [Not Recovered/Not Resolved]
  - Rash generalised [Unknown]
